FAERS Safety Report 5096004-9 (Version None)
Quarter: 2006Q3

REPORT INFORMATION
  Report Type: 
  Country: None (occurrence: None)
  Receive Date: 20060830
  Receipt Date: 20060819
  Transmission Date: 20061208
  Serious: Yes (Disabling, Other)
  Sender: FDA-Public Use
  Company Number: 2006101220

PATIENT
  Sex: Female
  Weight: 136.0791 kg

DRUGS (6)
  1. NEURONTIN [Suspect]
     Indication: NEURALGIA
     Dosage: 100 MG (100 MG, 1 IN 1 D)
  2. PREVACID [Concomitant]
  3. VALSARTAN [Concomitant]
  4. VALIUM [Concomitant]
  5. BACLOFEN [Concomitant]
  6. INDERAL [Concomitant]

REACTIONS (8)
  - ABASIA [None]
  - ABDOMINAL DISTENSION [None]
  - BACK PAIN [None]
  - DRUG INEFFECTIVE [None]
  - MOBILITY DECREASED [None]
  - NEURALGIA [None]
  - OEDEMA PERIPHERAL [None]
  - PARALYSIS [None]
